FAERS Safety Report 19045548 (Version 2)
Quarter: 2021Q1

REPORT INFORMATION
  Report Type: Spontaneous
  Country: US (occurrence: US)
  Receive Date: 20210323
  Receipt Date: 20210324
  Transmission Date: 20210420
  Serious: No
  Sender: FDA-Public Use
  Company Number: US-CLARUS THERAPEUTICS, INC.-2021-JATENZO-000021

PATIENT

DRUGS (5)
  1. JATENZO [Suspect]
     Active Substance: TESTOSTERONE UNDECANOATE
     Indication: BLOOD TESTOSTERONE DECREASED
     Dosage: 237 MILLIGRAM, BID (WITH FOOD)
     Route: 048
     Dates: start: 20210122
  2. JATENZO [Suspect]
     Active Substance: TESTOSTERONE UNDECANOATE
     Indication: FATIGUE
  3. TESTOSTERONE. [Concomitant]
     Active Substance: TESTOSTERONE
     Indication: BLOOD TESTOSTERONE DECREASED
     Dosage: UNK, SINGLE
     Route: 065
     Dates: start: 202101, end: 202101
  4. JATENZO [Suspect]
     Active Substance: TESTOSTERONE UNDECANOATE
     Indication: WEIGHT INCREASED
  5. LISINOPRIL. [Concomitant]
     Active Substance: LISINOPRIL
     Indication: BLOOD PRESSURE INCREASED
     Dosage: 10 MILLIGRAM, QD
     Route: 048

REACTIONS (3)
  - Rash macular [Recovered/Resolved]
  - Skin discomfort [Recovered/Resolved]
  - Pruritus [Recovered/Resolved]

NARRATIVE: CASE EVENT DATE: 20210125
